FAERS Safety Report 23712784 (Version 2)
Quarter: 2024Q2

REPORT INFORMATION
  Report Type: Spontaneous
  Country: US (occurrence: US)
  Receive Date: 20240405
  Receipt Date: 20240508
  Transmission Date: 20240716
  Serious: Yes (Hospitalization, Other)
  Sender: FDA-Public Use
  Company Number: US-GLAXOSMITHKLINE-US2024040429

PATIENT

DRUGS (4)
  1. TRELEGY ELLIPTA [Suspect]
     Active Substance: FLUTICASONE FUROATE\UMECLIDINIUM BROMIDE\VILANTEROL TRIFENATATE
     Indication: Chronic obstructive pulmonary disease
     Dosage: UNK UNK, QD (100MCG-62.5MCG)
  2. MIRTAZAPINE [Suspect]
     Active Substance: MIRTAZAPINE
     Indication: Insomnia
     Dosage: 15 MG, QD (EACH NIGHT)
  3. GABAPENTIN [Suspect]
     Active Substance: GABAPENTIN
     Indication: Muscle relaxant therapy
     Dosage: 100 MG, QD (EACH NIGHT)
  4. REMERON [Concomitant]
     Active Substance: MIRTAZAPINE
     Indication: Anxiety
     Dosage: UNK,15MCG

REACTIONS (5)
  - Fatigue [Recovering/Resolving]
  - Pneumonia [Recovering/Resolving]
  - Fear [Unknown]
  - Product dose omission issue [Unknown]
  - Product use issue [Unknown]

NARRATIVE: CASE EVENT DATE: 20240307
